FAERS Safety Report 9459009 (Version 3)
Quarter: 2013Q4

REPORT INFORMATION
  Report Type: Spontaneous
  Country: DE (occurrence: DE)
  Receive Date: 20130814
  Receipt Date: 20131015
  Transmission Date: 20140711
  Serious: Yes (Death, Hospitalization, Other)
  Sender: FDA-Public Use
  Company Number: DE-BRISTOL-MYERS SQUIBB COMPANY-19188234

PATIENT
  Age: 77 Year
  Sex: Female
  Weight: 42 kg

DRUGS (14)
  1. ELIQUIS [Suspect]
     Indication: ATRIAL FIBRILLATION
     Dates: start: 20130524, end: 20130713
  2. VASOPRIL [Concomitant]
  3. BELOC [Concomitant]
  4. TORASEMIDE [Concomitant]
  5. XIPAMIDE [Concomitant]
  6. MELPERONE HCL [Concomitant]
  7. MACROGOL [Concomitant]
     Dosage: POWDER
  8. PANTOZOL [Concomitant]
  9. BELOC-ZOK MITE [Concomitant]
  10. NOVALGIN [Concomitant]
  11. NOVODIGAL [Concomitant]
  12. TOREM [Concomitant]
  13. XIPAMIDE [Concomitant]
  14. DELIX [Concomitant]

REACTIONS (2)
  - Acidosis [Fatal]
  - Arterial occlusive disease [Unknown]
